FAERS Safety Report 5318083-3 (Version None)
Quarter: 2007Q1

REPORT INFORMATION
  Report Type: 
  Country: None (occurrence: None)
  Receive Date: 20070201
  Receipt Date: 20060315
  Transmission Date: 20070707
  Serious: Yes (Hospitalization)
  Sender: FDA-Public Use
  Company Number: MEDI-0004264

PATIENT
  Age: 50 Year
  Sex: Male

DRUGS (7)
  1. ETHYOL [Suspect]
     Indication: CHEMOTHERAPY
     Dosage: SUBCUTANEOUS
     Route: 058
     Dates: start: 20060119, end: 20060217
  2. CISPLATIN [Concomitant]
  3. FLUOROURACIL [Concomitant]
  4. ALLEGRA [Concomitant]
  5. KYTRIL [Concomitant]
  6. COMPAZINE [Concomitant]
  7. ATIVAN [Concomitant]

REACTIONS (10)
  - ADJUSTMENT DISORDER [None]
  - ASTHENIA [None]
  - CHILLS [None]
  - CONSTIPATION [None]
  - FATIGUE [None]
  - NAUSEA [None]
  - ORAL PAIN [None]
  - RASH [None]
  - STOMATITIS [None]
  - VOMITING [None]
